FAERS Safety Report 23637201 (Version 1)
Quarter: 2024Q1

REPORT INFORMATION
  Report Type: Spontaneous
  Country: US (occurrence: US)
  Receive Date: 20240315
  Receipt Date: 20240315
  Transmission Date: 20240410
  Serious: No
  Sender: FDA-Public Use
  Company Number: US-PFIZER INC-PV202400035278

PATIENT
  Age: 16 Year
  Sex: Male
  Weight: 98.8 kg

DRUGS (1)
  1. FLUCONAZOLE [Suspect]
     Active Substance: FLUCONAZOLE
     Indication: Meningitis cryptococcal
     Dosage: 6-12 MONTHS
     Dates: start: 20240103

REACTIONS (1)
  - Nausea [Unknown]
